FAERS Safety Report 11751431 (Version 1)
Quarter: 2015Q4

REPORT INFORMATION
  Report Type: Spontaneous
  Country: US (occurrence: US)
  Receive Date: 20151118
  Receipt Date: 20151118
  Transmission Date: 20160304
  Serious: Yes (Other)
  Sender: FDA-Public Use
  Company Number: US-NOVOPROD-412007

PATIENT
  Age: 53 Year
  Sex: Male
  Weight: 87 kg

DRUGS (3)
  1. NOVOLOG [Suspect]
     Active Substance: INSULIN ASPART
     Indication: TYPE 1 DIABETES MELLITUS
     Dosage: 25 U, QD
     Route: 058
     Dates: start: 20061006, end: 20140522
  2. NOVOLOG [Suspect]
     Active Substance: INSULIN ASPART
     Dosage: 22 U, SINGLE
     Route: 058
     Dates: start: 20140519, end: 20140519
  3. NOVOLOG [Suspect]
     Active Substance: INSULIN ASPART
     Dosage: 20 U, SINGLE
     Route: 058
     Dates: start: 20140520, end: 20140520

REACTIONS (1)
  - Hypoglycaemia [Recovered/Resolved]

NARRATIVE: CASE EVENT DATE: 20140520
